FAERS Safety Report 24390493 (Version 1)
Quarter: 2024Q4

REPORT INFORMATION
  Report Type: Spontaneous
  Country: FR (occurrence: FR)
  Receive Date: 20241003
  Receipt Date: 20241003
  Transmission Date: 20250114
  Serious: Yes (Disabling)
  Sender: AUROBINDO
  Company Number: FR-AFSSAPS-GR2024001155

PATIENT
  Age: 42 Year
  Sex: Male
  Weight: 80 kg

DRUGS (1)
  1. LEVOFLOXACIN [Suspect]
     Active Substance: LEVOFLOXACIN
     Indication: Infection
     Dosage: 750 MILLIGRAM, ONCE A DAY
     Route: 048
     Dates: start: 20240620, end: 20240626

REACTIONS (1)
  - Tendon disorder [Not Recovered/Not Resolved]

NARRATIVE: CASE EVENT DATE: 20240626
